FAERS Safety Report 6791121-7 (Version None)
Quarter: 2010Q2

REPORT INFORMATION
  Report Type: 
  Country: None (occurrence: None)
  Receive Date: 20100623
  Receipt Date: 20100623
  Transmission Date: 20101027
  Serious: Yes (Other)
  Sender: FDA-Public Use
  Company Number: None

PATIENT
  Age: 58 Year
  Sex: Female

DRUGS (1)
  1. RELISTOR [Suspect]
     Indication: CONSTIPATION
     Dosage: 12MG ONE DOSE SQ
     Route: 058
     Dates: start: 20100620, end: 20100620

REACTIONS (2)
  - GROIN PAIN [None]
  - PAIN IN EXTREMITY [None]
